FAERS Safety Report 4413892-7 (Version None)
Quarter: 2004Q3

REPORT INFORMATION
  Report Type: 
  Country: None (occurrence: None)
  Receive Date: 20040729
  Receipt Date: 20040331
  Transmission Date: 20050211
  Serious: Yes (Death, Hospitalization)
  Sender: FDA-Public Use
  Company Number: B01200400607

PATIENT
  Age: 82 Year
  Sex: Female

DRUGS (11)
  1. CLOPIDOGREL [Suspect]
     Indication: PROPHYLAXIS
     Dosage: 75 MG QD ORAL
     Route: 048
     Dates: start: 20030731, end: 20040218
  2. ACETYLSALICYLIC ACID SRT [Concomitant]
  3. TIAZAC [Concomitant]
  4. ATACAND [Concomitant]
  5. LASIX [Concomitant]
  6. EFFEXOR [Concomitant]
  7. ATARAX [Concomitant]
  8. KOFFEX [Concomitant]
  9. SENEKOT   (SENNA FRUIT) [Concomitant]
  10. TRAZODONE HCL [Concomitant]
  11. PANTOLOC     (PANTOPRAZOLE SODIUM) [Concomitant]

REACTIONS (1)
  - HEPATIC FAILURE [None]
